FAERS Safety Report 7672147-8 (Version None)
Quarter: 2011Q3

REPORT INFORMATION
  Report Type: 
  Country: None (occurrence: None)
  Receive Date: 20110809
  Receipt Date: 20110727
  Transmission Date: 20111222
  Serious: Yes (Hospitalization, Other)
  Sender: FDA-Public Use
  Company Number: PHHY2011US64288

PATIENT
  Sex: Male

DRUGS (2)
  1. GLEEVEC [Suspect]
     Indication: CHRONIC MYELOID LEUKAEMIA
     Dosage: UNK UKN, UNK
     Route: 048
     Dates: start: 20030101
  2. GLEEVEC [Suspect]
     Dosage: 400 MG, DAILY
     Route: 048
     Dates: start: 20070831

REACTIONS (7)
  - NAUSEA [None]
  - RETCHING [None]
  - MUSCLE SPASMS [None]
  - EAR INFECTION [None]
  - HYPERHIDROSIS [None]
  - VERTIGO [None]
  - DIZZINESS [None]
